FAERS Safety Report 24730178 (Version 1)
Quarter: 2024Q4

REPORT INFORMATION
  Report Type: Spontaneous
  Country: IT (occurrence: IT)
  Receive Date: 20241213
  Receipt Date: 20241213
  Transmission Date: 20250114
  Serious: Yes (Other)
  Sender: HIKMA
  Company Number: None

PATIENT
  Age: 45 Year
  Sex: Female
  Weight: 85 kg

DRUGS (2)
  1. CYCLOPHOSPHAMIDE [Suspect]
     Active Substance: CYCLOPHOSPHAMIDE
     Indication: Breast cancer
     Dosage: 950 MG
     Route: 042
     Dates: start: 20241003, end: 20241114
  2. EPIRUBICIN [Suspect]
     Active Substance: EPIRUBICIN
     Indication: Breast cancer
     Dosage: 140 MG
     Route: 042
     Dates: start: 20241003, end: 20241114

REACTIONS (4)
  - Aphthous ulcer [Recovering/Resolving]
  - Neuropathy peripheral [Recovering/Resolving]
  - Dysgeusia [Recovering/Resolving]
  - Dry eye [Recovering/Resolving]

NARRATIVE: CASE EVENT DATE: 20241006
